FAERS Safety Report 5551445-8 (Version None)
Quarter: 2007Q4

REPORT INFORMATION
  Report Type: 
  Country: None (occurrence: None)
  Receive Date: 20071212
  Receipt Date: 20071130
  Transmission Date: 20080405
  Serious: Yes (Other)
  Sender: FDA-Public Use
  Company Number: CH-PFIZER INC-2007101527

PATIENT
  Sex: Female

DRUGS (9)
  1. CYTOTEC [Suspect]
     Route: 067
     Dates: start: 20070524, end: 20070524
  2. FENTANYL [Suspect]
     Indication: ANAESTHESIA
     Route: 042
     Dates: start: 20070524, end: 20070524
  3. DORMICUM FOR INJECTION [Suspect]
     Indication: PREMEDICATION
     Route: 042
     Dates: start: 20070524, end: 20070524
  4. KETOROLAC [Suspect]
     Indication: PAIN
     Route: 042
     Dates: start: 20070524, end: 20070524
  5. LORAZEPAM [Suspect]
     Route: 042
     Dates: start: 20070524, end: 20070524
  6. SEVORANE [Suspect]
     Indication: ANAESTHESIA
     Dosage: TEXT:2 MAC-FREQ:ONCE
     Dates: start: 20070524, end: 20070524
  7. PROPOFOL [Concomitant]
     Indication: ANAESTHESIA
     Route: 042
     Dates: start: 20070524, end: 20070524
  8. SYNTOCINON [Concomitant]
     Indication: SURGERY
     Route: 042
     Dates: start: 20070524, end: 20070524
  9. LIDOCAINE [Concomitant]
     Indication: ANAESTHESIA
     Route: 042
     Dates: start: 20070524, end: 20070524

REACTIONS (2)
  - ABORTION [None]
  - DRUG ADMINISTRATION ERROR [None]
